FAERS Safety Report 26156486 (Version 1)
Quarter: 2025Q4

REPORT INFORMATION
  Report Type: Spontaneous
  Country: US (occurrence: US)
  Receive Date: 20251215
  Receipt Date: 20251215
  Transmission Date: 20260118
  Serious: Yes (Other)
  Sender: STRIDES
  Company Number: US-STRIDES ARCOLAB LIMITED-2025SP013274

PATIENT
  Age: 78 Year
  Sex: Male

DRUGS (8)
  1. PREDNISOLONE [Suspect]
     Active Substance: PREDNISOLONE
     Indication: Eosinophilic fasciitis
     Dosage: 60 MILLIGRAM, QD WITH GRADUAL TAPER
     Route: 065
  2. MYCOPHENOLATE MOFETIL [Suspect]
     Active Substance: MYCOPHENOLATE MOFETIL
     Indication: Eosinophilic fasciitis
     Dosage: UNK
     Route: 065
  3. MYCOPHENOLATE MOFETIL [Suspect]
     Active Substance: MYCOPHENOLATE MOFETIL
     Dosage: 1.5 GRAM, BID
     Route: 065
  4. FUROSEMIDE [Suspect]
     Active Substance: FUROSEMIDE
     Indication: Eosinophilic fasciitis
     Dosage: UNK
     Route: 065
  5. GEMCITABINE [Concomitant]
     Active Substance: GEMCITABINE
     Indication: Bladder cancer
     Dosage: UNK
     Route: 065
     Dates: start: 2022
  6. CABAZITAXEL [Concomitant]
     Active Substance: CABAZITAXEL
     Indication: Bladder cancer
     Dosage: UNK
     Route: 065
     Dates: start: 2022
  7. METHYLPREDNISOLONE [Concomitant]
     Active Substance: METHYLPREDNISOLONE
     Indication: Eosinophilic fasciitis
     Dosage: UNK
     Route: 065
  8. Immunoglobulin [Concomitant]
     Indication: Eosinophilic fasciitis
     Dosage: UNK; OVER 2 DAYS
     Route: 065

REACTIONS (3)
  - Therapy non-responder [Unknown]
  - Drug ineffective for unapproved indication [Unknown]
  - Off label use [Unknown]
